FAERS Safety Report 5013929-0 (Version None)
Quarter: 2006Q2

REPORT INFORMATION
  Report Type: 
  Country: None (occurrence: None)
  Receive Date: 20060530
  Receipt Date: 20050926
  Transmission Date: 20061013
  Serious: No
  Sender: FDA-Public Use
  Company Number: US-GLAXOSMITHKLINE-A0575919A

PATIENT
  Sex: Male

DRUGS (12)
  1. RETROVIR [Suspect]
     Indication: HIV INFECTION
     Route: 048
     Dates: start: 19950101, end: 19950101
  2. LEXIVA [Suspect]
     Indication: HIV INFECTION
     Dosage: 2TAB TWICE PER DAY
     Route: 048
     Dates: start: 20050923, end: 20050926
  3. AZITHROMYCIN [Suspect]
     Dosage: 1200MG WEEKLY
  4. PAXIL [Concomitant]
  5. RESTORIL [Concomitant]
     Dosage: 30MG AT NIGHT
  6. BENTYL [Concomitant]
  7. NEURONTIN [Concomitant]
  8. MEGACE [Concomitant]
  9. PROTONIX [Concomitant]
  10. PROVENTIL [Concomitant]
  11. BACTRIM DS [Concomitant]
  12. GUAIPHENESIN [Concomitant]

REACTIONS (3)
  - ABDOMINAL PAIN [None]
  - CHEST PAIN [None]
  - DRUG INTOLERANCE [None]
